FAERS Safety Report 25690843 (Version 2)
Quarter: 2025Q4

REPORT INFORMATION
  Report Type: Spontaneous
  Country: CA (occurrence: CA)
  Receive Date: 20250818
  Receipt Date: 20251006
  Transmission Date: 20260118
  Serious: Yes (Hospitalization, Other)
  Sender: PFIZER
  Company Number: CA-PFIZER INC-202500164006

PATIENT
  Age: 80 Year
  Sex: Female

DRUGS (5)
  1. VYNDAMAX [Suspect]
     Active Substance: TAFAMIDIS
     Indication: Cardiac amyloidosis
     Dosage: 61 MG, 1X/DAY
     Route: 048
     Dates: start: 20240126
  2. ANAFRANIL [Concomitant]
     Active Substance: CLOMIPRAMINE HYDROCHLORIDE
     Dosage: 200 MG,UNKNOWN FREQUENCY
  3. ASPIRIN [Concomitant]
     Active Substance: ASPIRIN
     Dosage: 81 MG,UNKNOWN FREQUENCY
  4. IRON [Concomitant]
     Active Substance: IRON
     Dosage: 300 MG,UNKNOWN FREQUENCY
  5. ROSUVASTATIN [Concomitant]
     Active Substance: ROSUVASTATIN
     Dosage: 40 MG,UNKNOWN FREQUENCY

REACTIONS (3)
  - Loss of consciousness [Recovering/Resolving]
  - Craniocerebral injury [Unknown]
  - Fall [Unknown]

NARRATIVE: CASE EVENT DATE: 20250101
